FAERS Safety Report 8262844-8 (Version None)
Quarter: 2012Q2

REPORT INFORMATION
  Report Type: 
  Country: None (occurrence: None)
  Receive Date: 20120405
  Receipt Date: 20120330
  Transmission Date: 20120825
  Serious: Yes (Hospitalization)
  Sender: FDA-Public Use
  Company Number: US-GLAXOSMITHKLINE-A0889292A

PATIENT
  Age: 59 Year
  Sex: Male

DRUGS (1)
  1. AVANDIA [Suspect]
     Indication: DIABETES MELLITUS
     Dosage: 4MG THREE TIMES PER DAY
     Route: 048
     Dates: start: 19990101, end: 20071008

REACTIONS (5)
  - ARTERIOSCLEROSIS CORONARY ARTERY [None]
  - MYOCARDIAL INFARCTION [None]
  - RENAL FAILURE [None]
  - CONGESTIVE CARDIOMYOPATHY [None]
  - CARDIAC FAILURE CONGESTIVE [None]
